FAERS Safety Report 5586124-4 (Version None)
Quarter: 2007Q4

REPORT INFORMATION
  Report Type: 
  Country: None (occurrence: None)
  Receive Date: 20071205
  Receipt Date: 20061128
  Transmission Date: 20080405
  Serious: Yes (Other)
  Sender: FDA-Public Use
  Company Number: HQWYE958221SEP06

PATIENT
  Age: 34 Year
  Sex: Female
  Weight: 59.02 kg

DRUGS (10)
  1. EFFEXOR XR [Suspect]
     Indication: ANXIETY
     Dosage: 150 MG 1X PER DAY, ORAL ; 37.5 MG 1X PER 1 DAY, ORAL ; 75 MG 1X PER 1 DAY, ORAL
     Route: 048
     Dates: start: 20040101, end: 20060817
  2. EFFEXOR XR [Suspect]
     Indication: DEPRESSION
     Dosage: 150 MG 1X PER DAY, ORAL ; 37.5 MG 1X PER 1 DAY, ORAL ; 75 MG 1X PER 1 DAY, ORAL
     Route: 048
     Dates: start: 20040101, end: 20060817
  3. EFFEXOR XR [Suspect]
     Indication: STRESS
     Dosage: 150 MG 1X PER DAY, ORAL ; 37.5 MG 1X PER 1 DAY, ORAL ; 75 MG 1X PER 1 DAY, ORAL
     Route: 048
     Dates: start: 20040101, end: 20060817
  4. EFFEXOR XR [Suspect]
     Indication: ANXIETY
     Dosage: 150 MG 1X PER DAY, ORAL ; 37.5 MG 1X PER 1 DAY, ORAL ; 75 MG 1X PER 1 DAY, ORAL
     Route: 048
     Dates: start: 20060818, end: 20060824
  5. EFFEXOR XR [Suspect]
     Indication: DEPRESSION
     Dosage: 150 MG 1X PER DAY, ORAL ; 37.5 MG 1X PER 1 DAY, ORAL ; 75 MG 1X PER 1 DAY, ORAL
     Route: 048
     Dates: start: 20060818, end: 20060824
  6. EFFEXOR XR [Suspect]
     Indication: STRESS
     Dosage: 150 MG 1X PER DAY, ORAL ; 37.5 MG 1X PER 1 DAY, ORAL ; 75 MG 1X PER 1 DAY, ORAL
     Route: 048
     Dates: start: 20060818, end: 20060824
  7. EFFEXOR XR [Suspect]
     Indication: ANXIETY
     Dosage: 150 MG 1X PER DAY, ORAL ; 37.5 MG 1X PER 1 DAY, ORAL ; 75 MG 1X PER 1 DAY, ORAL
     Route: 048
     Dates: start: 20060825, end: 20060831
  8. EFFEXOR XR [Suspect]
     Indication: DEPRESSION
     Dosage: 150 MG 1X PER DAY, ORAL ; 37.5 MG 1X PER 1 DAY, ORAL ; 75 MG 1X PER 1 DAY, ORAL
     Route: 048
     Dates: start: 20060825, end: 20060831
  9. EFFEXOR XR [Suspect]
     Indication: STRESS
     Dosage: 150 MG 1X PER DAY, ORAL ; 37.5 MG 1X PER 1 DAY, ORAL ; 75 MG 1X PER 1 DAY, ORAL
     Route: 048
     Dates: start: 20060825, end: 20060831
  10. SYNTHROID [Concomitant]

REACTIONS (12)
  - CONVULSION [None]
  - DIARRHOEA [None]
  - DRUG WITHDRAWAL SYNDROME [None]
  - EUPHORIC MOOD [None]
  - EYE MOVEMENT DISORDER [None]
  - HEARING IMPAIRED [None]
  - HYPERHIDROSIS [None]
  - INSOMNIA [None]
  - NAUSEA [None]
  - PALPITATIONS [None]
  - PARAESTHESIA [None]
  - VISION BLURRED [None]
